FAERS Safety Report 21172709 (Version 3)
Quarter: 2022Q3

REPORT INFORMATION
  Report Type: Report from Study
  Country: US (occurrence: US)
  Receive Date: 20220804
  Receipt Date: 20220829
  Transmission Date: 20221026
  Serious: Yes (Hospitalization, Other)
  Sender: FDA-Public Use
  Company Number: US-GBT-015015

PATIENT
  Age: 33 Year
  Sex: Female

DRUGS (49)
  1. OXBRYTA [Suspect]
     Active Substance: VOXELOTOR
     Indication: Pain
     Route: 048
     Dates: start: 20200515, end: 2020
  2. OXBRYTA [Suspect]
     Active Substance: VOXELOTOR
     Indication: Pain
     Dosage: OXBRYTA WAS STOPPED ON 06-OCT-2020 DUE TO PNEUMONIA
     Route: 048
     Dates: start: 2020, end: 20201006
  3. OXBRYTA [Suspect]
     Active Substance: VOXELOTOR
     Indication: Pain
     Dosage: OXBRYTA WAS RESTARTED ON 09-NOV-2020 AFTER PNEUMONIA RECOVERED.
     Dates: start: 20201109
  4. AZITHROMYCIN [Concomitant]
     Active Substance: AZITHROMYCIN
     Indication: Pneumonia
     Route: 048
     Dates: start: 20200625, end: 20200626
  5. AZITHROMYCIN [Concomitant]
     Active Substance: AZITHROMYCIN
     Indication: Pneumonia
     Route: 048
     Dates: start: 20200204, end: 20200208
  6. AZITHROMYCIN [Concomitant]
     Active Substance: AZITHROMYCIN
     Indication: Pneumonia
     Route: 048
     Dates: start: 20201020, end: 20201022
  7. AZITHROMYCIN [Concomitant]
     Active Substance: AZITHROMYCIN
     Indication: Pneumonia
     Dosage: TIME INTERVAL: TOTAL
     Route: 048
     Dates: start: 20201113, end: 20201113
  8. FOLIC ACID [Concomitant]
     Active Substance: FOLIC ACID
     Indication: Sickle cell disease
     Route: 048
     Dates: start: 20191222, end: 20191231
  9. FOLIC ACID [Concomitant]
     Active Substance: FOLIC ACID
     Indication: Sickle cell disease
     Route: 048
     Dates: start: 20200201, end: 20200214
  10. FOLIC ACID [Concomitant]
     Active Substance: FOLIC ACID
     Indication: Sickle cell disease
     Route: 048
     Dates: start: 20200327, end: 20200331
  11. FOLIC ACID [Concomitant]
     Active Substance: FOLIC ACID
     Indication: Sickle cell disease
     Route: 048
     Dates: start: 20200406, end: 20200415
  12. FOLIC ACID [Concomitant]
     Active Substance: FOLIC ACID
     Indication: Sickle cell disease
     Route: 048
     Dates: start: 20200609, end: 20200709
  13. FOLIC ACID [Concomitant]
     Active Substance: FOLIC ACID
     Indication: Sickle cell disease
     Route: 048
     Dates: start: 20200814, end: 20200825
  14. FOLIC ACID [Concomitant]
     Active Substance: FOLIC ACID
     Indication: Sickle cell disease
     Route: 048
     Dates: start: 20200829, end: 20200908
  15. FOLIC ACID [Concomitant]
     Active Substance: FOLIC ACID
     Indication: Sickle cell disease
     Route: 048
     Dates: start: 20120424, end: 20211110
  16. ERGOCALCIFEROL [Concomitant]
     Active Substance: ERGOCALCIFEROL
     Indication: Sickle cell disease
     Route: 048
     Dates: start: 20201005, end: 20211121
  17. AMOXICILLIN [Concomitant]
     Active Substance: AMOXICILLIN
     Dosage: TIME INTERVAL: 0.33333333 DAYS
     Route: 048
     Dates: start: 20200918, end: 20200922
  18. HYDROMORPHONE [Concomitant]
     Active Substance: HYDROMORPHONE
     Indication: Sickle cell anaemia with crisis
     Route: 041
     Dates: start: 20201206, end: 20201216
  19. HYDROMORPHONE [Concomitant]
     Active Substance: HYDROMORPHONE
     Indication: Sickle cell anaemia with crisis
     Route: 041
     Dates: start: 20201206
  20. HYDROMORPHONE [Concomitant]
     Active Substance: HYDROMORPHONE
     Indication: Sickle cell anaemia with crisis
     Route: 041
     Dates: start: 20201206
  21. HYDROMORPHONE [Concomitant]
     Active Substance: HYDROMORPHONE
     Indication: Sickle cell anaemia with crisis
     Route: 041
     Dates: start: 20201209
  22. HYDROMORPHONE [Concomitant]
     Active Substance: HYDROMORPHONE
     Indication: Sickle cell anaemia with crisis
     Dosage: TIME INTERVAL: TOTAL
     Route: 040
     Dates: start: 20201212
  23. HYDROMORPHONE [Concomitant]
     Active Substance: HYDROMORPHONE
     Indication: Sickle cell anaemia with crisis
     Route: 048
     Dates: start: 20201216, end: 20201222
  24. HYDROMORPHONE [Concomitant]
     Active Substance: HYDROMORPHONE
     Indication: Sickle cell anaemia with crisis
     Route: 040
     Dates: start: 20201218
  25. HYDROMORPHONE [Concomitant]
     Active Substance: HYDROMORPHONE
     Indication: Sickle cell anaemia with crisis
     Dosage: TIME INTERVAL: TOTAL
     Route: 048
     Dates: start: 20201219
  26. HYDROMORPHONE [Concomitant]
     Active Substance: HYDROMORPHONE
     Indication: Sickle cell anaemia with crisis
     Dosage: TIME INTERVAL: TOTAL
     Route: 040
     Dates: start: 20201219
  27. DILAUDID [Concomitant]
     Active Substance: HYDROMORPHONE HYDROCHLORIDE
     Indication: Sickle cell disease
     Route: 048
     Dates: start: 20190228, end: 20190323
  28. DILAUDID [Concomitant]
     Active Substance: HYDROMORPHONE HYDROCHLORIDE
     Indication: Sickle cell disease
     Route: 048
     Dates: start: 20191205, end: 20201106
  29. DILAUDID [Concomitant]
     Active Substance: HYDROMORPHONE HYDROCHLORIDE
     Indication: Sickle cell disease
     Route: 048
     Dates: start: 20201005, end: 20201201
  30. DILAUDID [Concomitant]
     Active Substance: HYDROMORPHONE HYDROCHLORIDE
     Indication: Sickle cell disease
     Route: 048
     Dates: start: 20201113, end: 20201222
  31. DILAUDID [Concomitant]
     Active Substance: HYDROMORPHONE HYDROCHLORIDE
     Indication: Sickle cell disease
     Route: 048
     Dates: start: 20210207, end: 20210721
  32. DILAUDID [Concomitant]
     Active Substance: HYDROMORPHONE HYDROCHLORIDE
     Indication: Sickle cell disease
     Route: 048
     Dates: start: 20210529, end: 20211206
  33. DILAUDID [Concomitant]
     Active Substance: HYDROMORPHONE HYDROCHLORIDE
     Indication: Sickle cell disease
     Route: 048
     Dates: start: 20210825
  34. ACETAMINOPHEN [Concomitant]
     Active Substance: ACETAMINOPHEN
     Indication: Sickle cell disease
     Route: 048
     Dates: start: 20191221, end: 20191231
  35. ACETAMINOPHEN [Concomitant]
     Active Substance: ACETAMINOPHEN
     Indication: Sickle cell disease
     Route: 048
     Dates: start: 20200328, end: 20200331
  36. ACETAMINOPHEN [Concomitant]
     Active Substance: ACETAMINOPHEN
     Indication: Sickle cell disease
     Dates: start: 20200408, end: 20200415
  37. ACETAMINOPHEN [Concomitant]
     Active Substance: ACETAMINOPHEN
     Indication: Sickle cell disease
     Route: 048
     Dates: start: 20200629, end: 20200709
  38. ACETAMINOPHEN [Concomitant]
     Active Substance: ACETAMINOPHEN
     Indication: Sickle cell disease
     Route: 048
     Dates: start: 20200815, end: 20200825
  39. ACETAMINOPHEN [Concomitant]
     Active Substance: ACETAMINOPHEN
     Indication: Sickle cell disease
     Route: 048
     Dates: start: 20201018, end: 20201110
  40. ACETAMINOPHEN [Concomitant]
     Active Substance: ACETAMINOPHEN
     Indication: Sickle cell disease
     Route: 048
     Dates: start: 20201113, end: 20201127
  41. ACETAMINOPHEN [Concomitant]
     Active Substance: ACETAMINOPHEN
     Indication: Sickle cell disease
     Route: 048
     Dates: start: 20201127, end: 20201201
  42. ACETAMINOPHEN [Concomitant]
     Active Substance: ACETAMINOPHEN
     Indication: Sickle cell disease
     Route: 048
     Dates: start: 20201210, end: 20201222
  43. ACETAMINOPHEN [Concomitant]
     Active Substance: ACETAMINOPHEN
     Indication: Sickle cell disease
     Route: 048
     Dates: start: 20210127, end: 20210202
  44. ACETAMINOPHEN [Concomitant]
     Active Substance: ACETAMINOPHEN
     Indication: Sickle cell disease
     Route: 048
     Dates: start: 20210211, end: 20210226
  45. ACETAMINOPHEN [Concomitant]
     Active Substance: ACETAMINOPHEN
     Indication: Sickle cell disease
     Route: 048
     Dates: start: 20210226, end: 20210305
  46. ACETAMINOPHEN [Concomitant]
     Active Substance: ACETAMINOPHEN
     Indication: Sickle cell disease
     Route: 048
     Dates: start: 20210410, end: 20210421
  47. ACETAMINOPHEN [Concomitant]
     Active Substance: ACETAMINOPHEN
     Indication: Sickle cell disease
     Route: 048
     Dates: start: 20210503, end: 20210508
  48. ACETAMINOPHEN [Concomitant]
     Active Substance: ACETAMINOPHEN
     Indication: Sickle cell disease
     Route: 048
     Dates: start: 20210504, end: 20210528
  49. HYDROXYUREA [Concomitant]
     Active Substance: HYDROXYUREA
     Indication: Sickle cell disease
     Route: 048
     Dates: start: 20200404, end: 20200609

REACTIONS (7)
  - Sickle cell anaemia with crisis [Recovered/Resolved]
  - Pneumonia [Recovered/Resolved]
  - Sickle cell anaemia with crisis [Recovered/Resolved]
  - Sickle cell anaemia with crisis [Recovered/Resolved]
  - Sickle cell anaemia with crisis [Recovered/Resolved]
  - Sickle cell anaemia with crisis [Recovered/Resolved]
  - Sickle cell anaemia with crisis [Recovered/Resolved]

NARRATIVE: CASE EVENT DATE: 20200813
